FAERS Safety Report 8421111-X (Version None)
Quarter: 2012Q2

REPORT INFORMATION
  Report Type: 
  Country: None (occurrence: None)
  Receive Date: 20120608
  Receipt Date: 20120530
  Transmission Date: 20120825
  Serious: Yes (Other)
  Sender: FDA-Public Use
  Company Number: US-US-EMD SERONO, INC.-7080331

PATIENT
  Sex: Female

DRUGS (5)
  1. REBIF [Suspect]
     Route: 058
  2. VALIUM [Concomitant]
     Indication: RELAXATION THERAPY
  3. MOTRIN [Concomitant]
     Indication: PREMEDICATION
  4. REBIF [Suspect]
     Route: 058
  5. REBIF [Suspect]
     Indication: MULTIPLE SCLEROSIS
     Route: 058
     Dates: start: 20050613

REACTIONS (1)
  - CELLULITIS STAPHYLOCOCCAL [None]
